FAERS Safety Report 4959000-5 (Version None)
Quarter: 2006Q1

REPORT INFORMATION
  Report Type: 
  Country: None (occurrence: None)
  Receive Date: 20060331
  Receipt Date: 19920212
  Transmission Date: 20060701
  Serious: Yes (Other)
  Sender: FDA-Public Use
  Company Number: 1992UW19745

PATIENT
  Age: 20 Month
  Sex: Female

DRUGS (7)
  1. DIPRIVAN [Suspect]
     Indication: INDUCTION OF ANAESTHESIA
     Dosage: 5-10 MG KG HOUR
     Route: 042
  2. VECURONIUM BROMIDE [Concomitant]
  3. ISOFLURANE [Concomitant]
  4. NITROUS OXIDE W/ OXYGEN [Concomitant]
  5. NEOSTIGMINE [Concomitant]
  6. ROBINUL [Concomitant]
  7. DICLOFENAC [Concomitant]

REACTIONS (9)
  - BLOOD CREATINE PHOSPHOKINASE INCREASED [None]
  - DIZZINESS [None]
  - FATIGUE [None]
  - HEADACHE [None]
  - HEPATIC ENZYME INCREASED [None]
  - MYOGLOBINURIA [None]
  - NAUSEA [None]
  - PHARYNGOLARYNGEAL PAIN [None]
  - SHOULDER PAIN [None]
